FAERS Safety Report 8732913 (Version 2)
Quarter: 2012Q4

REPORT INFORMATION
  Report Type: 
  Country: JP (occurrence: JP)
  Receive Date: 20120820
  Receipt Date: 20120904
  Transmission Date: 20130627
  Serious: Yes (Hospitalization)
  Sender: FDA-Public Use
  Company Number: JP-JNJFOC-20120805994

PATIENT

DRUGS (4)
  1. TRAMADOL HYDROCHLORIDE/ACETAMINOPHEN [Suspect]
     Indication: PAIN
     Dosage: average initial dosage 2.62 tablets and average final dosage 5.23 tablets
     Route: 065
  2. ANTIINFLAMMATORY NOS [Concomitant]
     Route: 065
  3. ANALGESIC NOS [Concomitant]
     Route: 065
  4. UNKNOWN MEDICATION [Concomitant]
     Route: 065

REACTIONS (1)
  - Hospitalisation [Unknown]
